FAERS Safety Report 8238444-2 (Version None)
Quarter: 2012Q1

REPORT INFORMATION
  Report Type: 
  Country: None (occurrence: None)
  Receive Date: 20120327
  Receipt Date: 20120314
  Transmission Date: 20120608
  Serious: Yes (Hospitalization, Other)
  Sender: FDA-Public Use
  Company Number: CA-ROCHE-772482

PATIENT
  Sex: Female
  Weight: 64.6 kg

DRUGS (2)
  1. VEMURAFENIB [Suspect]
     Indication: MALIGNANT MELANOMA
     Dosage: LAST DOSE PRIOR TO SAE: 06 FEBRUARY 2011.
     Route: 048
     Dates: start: 20101027, end: 20110302
  2. EFFEXOR XR [Concomitant]

REACTIONS (4)
  - SQUAMOUS CELL CARCINOMA OF SKIN [None]
  - PLEURITIC PAIN [None]
  - PLEURAL EFFUSION [None]
  - PANCREATITIS [None]
